FAERS Safety Report 4956391-6 (Version None)
Quarter: 2006Q1

REPORT INFORMATION
  Report Type: 
  Country: None (occurrence: None)
  Receive Date: 20060328
  Receipt Date: 20060328
  Transmission Date: 20060701
  Serious: Yes (Other)
  Sender: FDA-Public Use
  Company Number: None

PATIENT
  Age: 10 Year
  Sex: Female
  Weight: 40.8237 kg

DRUGS (1)
  1. NIZORAL [Suspect]
     Dosage: USE SHAMPOO IN SIZE OF NICKEL OR QUARTER IN YOUR PALM

REACTIONS (1)
  - SYNCOPE [None]
